FAERS Safety Report 9522605 (Version 2)
Quarter: 2013Q3

REPORT INFORMATION
  Report Type: Report from Study
  Country: KR (occurrence: KR)
  Receive Date: 20130913
  Receipt Date: 20130918
  Transmission Date: 20140515
  Serious: Yes (Other)
  Sender: FDA-Public Use
  Company Number: KR-JNJFOC-20130902968

PATIENT
  Age: 12 Year
  Sex: Male
  Weight: 36.5 kg

DRUGS (1)
  1. REMICADE [Suspect]
     Indication: CROHN^S DISEASE
     Route: 042
     Dates: start: 20130723, end: 20130806

REACTIONS (1)
  - Intestinal perforation [Recovered/Resolved]
